FAERS Safety Report 21871167 (Version 1)
Quarter: 2023Q1

REPORT INFORMATION
  Report Type: Spontaneous
  Country: US (occurrence: US)
  Receive Date: 20230117
  Receipt Date: 20230117
  Transmission Date: 20230418
  Serious: Yes (Life-Threatening, Other)
  Sender: FDA-Public Use
  Company Number: US-PFIZER INC-PV202300005295

PATIENT
  Age: 22 Year
  Sex: Male

DRUGS (6)
  1. METHYLPREDNISOLONE SODIUM SUCCINATE [Suspect]
     Active Substance: METHYLPREDNISOLONE SODIUM SUCCINATE
     Indication: Morvan syndrome
     Dosage: 1 G, DAILY,FOR ADDITIONAL 5 DAYS
     Route: 042
  2. METHYLPREDNISOLONE SODIUM SUCCINATE [Suspect]
     Active Substance: METHYLPREDNISOLONE SODIUM SUCCINATE
     Indication: Myasthenia gravis
  3. HUMAN IMMUNOGLOBULIN G [Suspect]
     Active Substance: HUMAN IMMUNOGLOBULIN G
     Indication: Morvan syndrome
     Dosage: 2 GRAMS/KG OF BODY WEIGHT
     Route: 042
  4. HUMAN IMMUNOGLOBULIN G [Suspect]
     Active Substance: HUMAN IMMUNOGLOBULIN G
     Indication: Myasthenia gravis
  5. PREDNISONE [Suspect]
     Active Substance: PREDNISONE
     Indication: Morvan syndrome
     Dosage: 80 MG, DAILY
  6. PREDNISONE [Suspect]
     Active Substance: PREDNISONE
     Indication: Myasthenia gravis

REACTIONS (1)
  - Drug ineffective [Unknown]
